FAERS Safety Report 5647909-9 (Version None)
Quarter: 2008Q1

REPORT INFORMATION
  Report Type: 
  Country: None (occurrence: None)
  Receive Date: 20080303
  Receipt Date: 20080220
  Transmission Date: 20080703
  Serious: Yes (Other)
  Sender: FDA-Public Use
  Company Number: US-PFIZER INC-2008017685

PATIENT
  Sex: Female
  Weight: 72 kg

DRUGS (16)
  1. LYRICA [Suspect]
     Indication: NEUROPATHY PERIPHERAL
  2. PERCOCET [Concomitant]
  3. REGLAN [Concomitant]
  4. PRILOSEC [Concomitant]
  5. LASIX [Concomitant]
  6. VITAMIN CAP [Concomitant]
  7. CYTOMEL [Concomitant]
  8. STOOL SOFTENER [Concomitant]
  9. TOPAMAX [Concomitant]
  10. SEROQUEL [Concomitant]
  11. PULMICORT [Concomitant]
  12. ALL OTHER THERAPEUTIC PRODUCTS [Concomitant]
  13. XANAX [Concomitant]
  14. TAMOXIFEN [Concomitant]
  15. ANTIBIOTICS [Concomitant]
  16. NYSTATIN [Concomitant]

REACTIONS (2)
  - CANDIDIASIS [None]
  - OEDEMA PERIPHERAL [None]
